FAERS Safety Report 11395233 (Version 1)
Quarter: 2015Q3

REPORT INFORMATION
  Report Type: Spontaneous
  Country: US (occurrence: None)
  Receive Date: 20150817
  Receipt Date: 20150817
  Transmission Date: 20151125
  Serious: Yes (Other)
  Sender: FDA-Public Use
  Company Number: None

PATIENT
  Age: 24 Year
  Sex: Female
  Weight: 58.97 kg

DRUGS (4)
  1. INTEGRA [Concomitant]
  2. PRENATAL VITAMINS [Concomitant]
     Active Substance: VITAMINS
  3. BRETHINE [Suspect]
     Active Substance: TERBUTALINE SULFATE
     Indication: POSTPONEMENT OF PRETERM DELIVERY
     Dosage: LANNETT CO INC, FOUR TIMES DAILY, TAKEN BY MOUTH
     Route: 048
     Dates: start: 20150812, end: 20150814
  4. ACYCLOVIR. [Concomitant]
     Active Substance: ACYCLOVIR

REACTIONS (6)
  - Memory impairment [None]
  - Exposure during pregnancy [None]
  - Amnesia [None]
  - Tachycardia [None]
  - Hyperhidrosis [None]
  - Somnolence [None]

NARRATIVE: CASE EVENT DATE: 20150814
